FAERS Safety Report 9472287 (Version 1)
Quarter: 2013Q3

REPORT INFORMATION
  Report Type: Spontaneous
  Country: CN (occurrence: CN)
  Receive Date: 20130823
  Receipt Date: 20130823
  Transmission Date: 20140515
  Serious: Yes (Death, Other)
  Sender: FDA-Public Use
  Company Number: CN-JNJFOC-20130807007

PATIENT
  Sex: 0

DRUGS (13)
  1. DOXORUBICIN HYDROCHLORIDE [Suspect]
     Indication: LYMPHOMA
     Route: 042
  2. RITUXIMAB [Suspect]
     Indication: LYMPHOMA
     Route: 065
  3. CYCLOPHOSPHAMIDE [Suspect]
     Indication: LYMPHOMA
     Route: 065
  4. VINCRISTINE SULPHATE [Suspect]
     Indication: LYMPHOMA
     Route: 065
  5. PREDNISOLONE [Suspect]
     Indication: LYMPHOMA
     Route: 065
  6. BLEOMYCIN [Suspect]
     Indication: LYMPHOMA
     Route: 065
  7. ETOPOSIDE [Suspect]
     Indication: LYMPHOMA
     Route: 065
  8. PROCARBAZINE [Suspect]
     Indication: LYMPHOMA
     Route: 065
  9. HOMOHARRINGTONINE [Suspect]
     Indication: LEUKAEMIA
  10. CYTARABINE [Suspect]
     Indication: LEUKAEMIA
     Route: 065
  11. ABIRATERONE ACETATE [Suspect]
     Indication: LEUKAEMIA
     Route: 065
  12. DAUNORUBICIN [Suspect]
     Indication: LEUKAEMIA
     Route: 065
  13. IDARUBICIN [Suspect]
     Indication: LEUKAEMIA
     Route: 065

REACTIONS (2)
  - Neoplasm recurrence [Fatal]
  - Traumatic lung injury [Fatal]
